FAERS Safety Report 9168945 (Version 1)
Quarter: 2013Q1

REPORT INFORMATION
  Report Type: Spontaneous
  Country: US (occurrence: None)
  Receive Date: 20130307
  Receipt Date: 20130307
  Transmission Date: 20140127
  Serious: Yes (Other)
  Sender: FDA-Public Use
  Company Number: CRC-13-147

PATIENT
  Age: 79 Year
  Sex: Male
  Weight: 73.94 kg

DRUGS (4)
  1. ALENDRONATE SODIUM TABLETS, USP, 70MG MFR/LABLE SUN PH [Suspect]
     Indication: OSTEOPOROSIS
     Dosage: 1 TAB ONCE/WEE; ORALLY
     Route: 048
  2. VITAMIN D [Suspect]
  3. ADVAIR [Concomitant]
  4. FINASTERIDE (PROSCAR) [Concomitant]

REACTIONS (6)
  - Dyspnoea [None]
  - Nasopharyngitis [None]
  - Abdominal discomfort [None]
  - Oesophageal pain [None]
  - Fatigue [None]
  - Pain in extremity [None]
